FAERS Safety Report 5626742-8 (Version None)
Quarter: 2008Q1

REPORT INFORMATION
  Report Type: 
  Country: None (occurrence: None)
  Receive Date: 20080214
  Receipt Date: 20080205
  Transmission Date: 20080703
  Serious: Yes (Death, Other)
  Sender: FDA-Public Use
  Company Number: JP-PFIZER INC-2008007171

PATIENT
  Age: 61 Year
  Sex: Female

DRUGS (17)
  1. NORVASC [Suspect]
     Dosage: DAILY DOSE:5MG-FREQ:DAILY
     Route: 048
  2. CALSLOT [Concomitant]
     Route: 048
  3. POLARAMINE [Concomitant]
  4. AMOBAN [Concomitant]
     Route: 048
  5. PL [Concomitant]
     Route: 048
  6. PYRAZOLONES [Concomitant]
     Route: 048
  7. NABOAL - SLOW RELEASE [Concomitant]
  8. ENALAPRIL MALEATE [Concomitant]
     Route: 048
  9. BLOPRESS [Concomitant]
     Route: 048
  10. SALAZAC [Concomitant]
     Route: 048
  11. CEREKINON [Concomitant]
     Route: 048
  12. FERROUS SULFATE TAB [Concomitant]
     Route: 048
  13. SELBEX [Concomitant]
     Route: 048
  14. LENDORMIN [Concomitant]
     Route: 048
  15. METALCAPTASE [Concomitant]
     Route: 048
  16. RHEUMATREX [Concomitant]
     Route: 048
  17. HUSTAZOL [Concomitant]
     Route: 048

REACTIONS (5)
  - AGRANULOCYTOSIS [None]
  - PLATELET COUNT DECREASED [None]
  - PNEUMONIA [None]
  - RED BLOOD CELL COUNT DECREASED [None]
  - WHITE BLOOD CELL COUNT DECREASED [None]
